FAERS Safety Report 16931636 (Version 1)
Quarter: 2019Q4

REPORT INFORMATION
  Report Type: Spontaneous
  Country: JP (occurrence: JP)
  Receive Date: 20191017
  Receipt Date: 20191017
  Transmission Date: 20200122
  Serious: Yes (Hospitalization)
  Sender: FDA-Public Use
  Company Number: JP-ASTRAZENECA-2019SF03688

PATIENT
  Age: 74 Year
  Sex: Male
  Weight: 57 kg

DRUGS (4)
  1. TAGRISSO [Suspect]
     Active Substance: OSIMERTINIB
     Indication: NON-SMALL CELL LUNG CANCER
     Route: 048
     Dates: start: 20181120, end: 20181210
  2. TAGRISSO [Suspect]
     Active Substance: OSIMERTINIB
     Indication: NON-SMALL CELL LUNG CANCER
     Route: 048
     Dates: start: 20190108, end: 20190703
  3. SITAFLOXACIN HYDRATE [Suspect]
     Active Substance: SITAFLOXACIN
     Dosage: DOSE UNKNOWN
     Route: 065
  4. ACETAMINOPHEN. [Suspect]
     Active Substance: ACETAMINOPHEN
     Dosage: DOSE UNKNOWN
     Route: 065

REACTIONS (2)
  - Hepatic function abnormal [Recovered/Resolved]
  - Lung disorder [Recovering/Resolving]

NARRATIVE: CASE EVENT DATE: 20181210
